FAERS Safety Report 15403639 (Version 2)
Quarter: 2018Q4

REPORT INFORMATION
  Report Type: Report from Study
  Country: IT (occurrence: IT)
  Receive Date: 20180919
  Receipt Date: 20181011
  Transmission Date: 20190204
  Serious: Yes (Other)
  Sender: FDA-Public Use
  Company Number: IT-TEVA-2018-IT-956084

PATIENT
  Age: 73 Year
  Sex: Female

DRUGS (7)
  1. PEPTAZOL 20 MG COMPRESSE GASTRORESISTENTI [Concomitant]
     Indication: GASTROOESOPHAGEAL REFLUX PROPHYLAXIS
  2. GAVISCON-2 [Concomitant]
     Dosage: UNK MG/ML
  3. LERCANIDIPINE [Concomitant]
     Active Substance: LERCANIDIPINE
  4. LEVOFLOXACIN. [Suspect]
     Active Substance: LEVOFLOXACIN
     Indication: SINUSITIS
     Dosage: UNK UNK, QCY
     Route: 048
     Dates: start: 20180629, end: 20180703
  5. LEVOPRAID [LEVOSULPIRIDE] [Suspect]
     Active Substance: LEVOSULPIRIDE
     Indication: DYSPEPSIA
     Dosage: 1 DF, PRN
     Route: 048
  6. ALMARYTM [Suspect]
     Active Substance: FLECAINIDE ACETATE
     Indication: ARRHYTHMIA
     Dosage: 1 DOSAGE FORMS DAILY; 1 DF, QD
     Route: 048
  7. BLOPRESID [Concomitant]
     Active Substance: CANDESARTAN CILEXETIL\HYDROCHLOROTHIAZIDE
     Dosage: 3225 UNK

REACTIONS (3)
  - Tachycardia [Recovering/Resolving]
  - Ventricular extrasystoles [Recovering/Resolving]
  - Hypertension [Recovering/Resolving]

NARRATIVE: CASE EVENT DATE: 20180703
